FAERS Safety Report 4554516-8 (Version None)
Quarter: 2005Q1

REPORT INFORMATION
  Report Type: 
  Country: None (occurrence: None)
  Receive Date: 20050114
  Receipt Date: 20040216
  Transmission Date: 20050727
  Serious: Yes (Other)
  Sender: FDA-Public Use
  Company Number: GXKR2004GB00503

PATIENT
  Age: 68 Year
  Sex: Female
  Weight: 63 kg

DRUGS (6)
  1. CIMETIDINE [Suspect]
     Indication: DYSPEPSIA
     Dosage: BID, ORAL
     Route: 048
  2. DIFTAVAX (DIPHTHERIA AND TETANUS TOXOIDS) [Concomitant]
  3. ACETYLSALICYLIC ACID (ACETYLSALICYLIC ACID) [Concomitant]
  4. RANITIDNE (RANITIDINE) [Concomitant]
  5. CINNARIZINE (CINNARIZINE) [Concomitant]
  6. PEPTAC (CALCIUM CARBONATE, SODIUM ALGINATE, SODIUM BICARBONATE) [Concomitant]

REACTIONS (4)
  - BALANCE DISORDER [None]
  - DIZZINESS [None]
  - TRANSIENT ISCHAEMIC ATTACK [None]
  - VERTIGO [None]
